FAERS Safety Report 7105653-5 (Version None)
Quarter: 2010Q4

REPORT INFORMATION
  Report Type: 
  Country: None (occurrence: None)
  Receive Date: 20101116
  Receipt Date: 20101102
  Transmission Date: 20110411
  Serious: Yes (Death, Life-Threatening, Other)
  Sender: FDA-Public Use
  Company Number: JP-PFIZER INC-2010147282

PATIENT
  Age: 60 Year
  Sex: Male
  Weight: 58 kg

DRUGS (9)
  1. CAMPTOSAR [Suspect]
     Indication: COLON CANCER
     Dosage: 125 MG, UNK
     Route: 041
     Dates: start: 20100831, end: 20100831
  2. CAMPTOSAR [Suspect]
     Dosage: 250 MG, UNK
     Route: 041
     Dates: start: 20100914, end: 20101012
  3. FLUOROURACIL [Suspect]
     Indication: COLON CANCER
     Dosage: 500 MG, UNK
     Route: 040
     Dates: start: 20100831, end: 20101012
  4. FLUOROURACIL [Suspect]
     Dosage: 3750 MG, UNK
     Route: 041
     Dates: start: 20100831, end: 20101012
  5. CALCIUM LEVOFOLINATE [Suspect]
     Indication: COLON CANCER
     Dosage: 325 MG, UNK
     Route: 041
     Dates: start: 20100831, end: 20101012
  6. VECTIBIX [Suspect]
     Indication: COLON CANCER
     Dosage: 350 MG, UNK
     Dates: start: 20100914, end: 20101012
  7. AVASTIN [Concomitant]
     Indication: COLON CANCER
     Dosage: 290 MG, UNK
     Route: 041
     Dates: start: 20100831, end: 20100831
  8. SULBACILLIN [Concomitant]
     Indication: PROPHYLAXIS
     Dosage: 1.5 G, 2X/DAY
     Route: 042
     Dates: start: 20101015, end: 20101015
  9. FLOMOX [Concomitant]
     Indication: PROPHYLAXIS
     Dosage: 100 MG, 3X/DAY
     Route: 048
     Dates: start: 20101016, end: 20101016

REACTIONS (5)
  - DIARRHOEA [None]
  - DISSEMINATED INTRAVASCULAR COAGULATION [None]
  - LEUKOPENIA [None]
  - RENAL FAILURE ACUTE [None]
  - THROMBOCYTOPENIA [None]
